FAERS Safety Report 10177627 (Version 1)
Quarter: 2014Q2

REPORT INFORMATION
  Report Type: Spontaneous
  Country: US (occurrence: US)
  Receive Date: 20140516
  Receipt Date: 20140516
  Transmission Date: 20141212
  Serious: No
  Sender: FDA-Public Use
  Company Number: US-SA-2014SA026374

PATIENT
  Age: 31 Year
  Sex: Male

DRUGS (4)
  1. SKLICE [Suspect]
     Indication: LICE INFESTATION
     Route: 061
  2. LEVOTHYROXINE [Concomitant]
     Indication: THYROID DISORDER
     Dates: start: 2009
  3. RANITIDINE [Concomitant]
     Indication: GASTROOESOPHAGEAL REFLUX DISEASE
     Dates: start: 2009
  4. METFORMIN [Concomitant]
     Dosage: ONE TIME A DAY MEAL TIME
     Dates: start: 201212

REACTIONS (2)
  - Pruritus [Recovered/Resolved]
  - Drug ineffective [Unknown]
